FAERS Safety Report 19149917 (Version 2)
Quarter: 2021Q2

REPORT INFORMATION
  Report Type: Spontaneous
  Country: US (occurrence: US)
  Receive Date: 20210417
  Receipt Date: 20210512
  Transmission Date: 20210717
  Serious: Yes (Life-Threatening, Hospitalization, Other)
  Sender: FDA-Public Use
  Company Number: NVSC2021US084723

PATIENT
  Age: 57 Year
  Sex: Female
  Weight: 61 kg

DRUGS (1)
  1. KYMRIAH [Suspect]
     Active Substance: TISAGENLECLEUCEL
     Indication: DIFFUSE LARGE B-CELL LYMPHOMA
     Dosage: 5.3 DF, QD (5.3 X 10^8 CAR?POS)
     Route: 042
     Dates: start: 20210408, end: 20210408

REACTIONS (13)
  - Dyspnoea [Unknown]
  - C-reactive protein increased [Unknown]
  - Pleural effusion [Recovered/Resolved]
  - Blood pressure systolic increased [Unknown]
  - Serum ferritin increased [Unknown]
  - Tachycardia [Recovered/Resolved]
  - Hyperhidrosis [Unknown]
  - Cytokine release syndrome [Recovered/Resolved]
  - Hypoxia [Recovered/Resolved]
  - Pyrexia [Recovered/Resolved]
  - Tachypnoea [Recovered/Resolved]
  - Chest discomfort [Unknown]
  - Hypotension [Recovered/Resolved]

NARRATIVE: CASE EVENT DATE: 20210410
